FAERS Safety Report 20953710 (Version 2)
Quarter: 2022Q2

REPORT INFORMATION
  Report Type: Spontaneous
  Country: JP (occurrence: JP)
  Receive Date: 20220613
  Receipt Date: 20220629
  Transmission Date: 20220721
  Serious: Yes (Death)
  Sender: FDA-Public Use
  Company Number: JP-JNJFOC-20220614356

PATIENT
  Age: 49 Year
  Sex: Male
  Weight: 95.8 kg

DRUGS (9)
  1. PALIPERIDONE PALMITATE [Suspect]
     Active Substance: PALIPERIDONE PALMITATE
     Indication: Schizophrenia
     Dosage: GLUTEAL
     Route: 030
     Dates: start: 20211130, end: 20211130
  2. PALIPERIDONE PALMITATE [Suspect]
     Active Substance: PALIPERIDONE PALMITATE
     Dosage: GLUTEAL
     Route: 030
     Dates: start: 20211207, end: 20211207
  3. PALIPERIDONE PALMITATE [Suspect]
     Active Substance: PALIPERIDONE PALMITATE
     Dosage: GLUTEAL
     Route: 030
     Dates: start: 20210104, end: 20210104
  4. PALIPERIDONE PALMITATE [Suspect]
     Active Substance: PALIPERIDONE PALMITATE
     Dosage: GLUTEAL
     Route: 030
     Dates: start: 20220201, end: 20220201
  5. PALIPERIDONE PALMITATE [Suspect]
     Active Substance: PALIPERIDONE PALMITATE
     Dosage: GLUTEAL
     Route: 030
     Dates: start: 20220301, end: 20220301
  6. PALIPERIDONE PALMITATE [Suspect]
     Active Substance: PALIPERIDONE PALMITATE
     Dosage: GLUTEAL
     Route: 030
     Dates: start: 20220426, end: 20220426
  7. TRIAZOLAM [Concomitant]
     Active Substance: TRIAZOLAM
     Indication: Insomnia
     Route: 048
  8. TRIAZOLAM [Concomitant]
     Active Substance: TRIAZOLAM
     Dosage: P.R.N
     Route: 048
  9. ZOTEPINE [Concomitant]
     Active Substance: ZOTEPINE
     Indication: Product used for unknown indication
     Route: 048

REACTIONS (3)
  - Myocardial ischaemia [Fatal]
  - Sinus tachycardia [Unknown]
  - Product dose omission issue [Unknown]

NARRATIVE: CASE EVENT DATE: 20220301
